FAERS Safety Report 7062930-4 (Version None)
Quarter: 2010Q4

REPORT INFORMATION
  Report Type: 
  Country: None (occurrence: None)
  Receive Date: 20101026
  Receipt Date: 20101018
  Transmission Date: 20110411
  Serious: Yes (Hospitalization)
  Sender: FDA-Public Use
  Company Number: BR-ABBOTT-10P-020-0665303-00

PATIENT
  Sex: Female
  Weight: 70 kg

DRUGS (11)
  1. HUMIRA [Suspect]
     Indication: CROHN'S DISEASE
     Route: 058
     Dates: start: 20100601, end: 20100601
  2. HUMIRA [Suspect]
     Route: 058
  3. HUMIRA [Suspect]
     Route: 058
  4. ISONIAZID [Suspect]
     Indication: ANTIBIOTIC PROPHYLAXIS
     Dosage: FORM STRENGTH:  100MG / 3 TIMES EVERY 24 HOURS
     Route: 048
     Dates: start: 20100601
  5. MESALAZINE [Concomitant]
     Indication: CROHN'S DISEASE
     Route: 048
     Dates: start: 20060101
  6. AZATHIOPRINE [Concomitant]
     Indication: CROHN'S DISEASE
     Route: 048
  7. CLOMIPRAMINE [Concomitant]
     Indication: ANXIETY
     Route: 048
     Dates: start: 20090101
  8. OMEPRAZOLE [Concomitant]
     Indication: GASTRIC DISORDER
     Route: 048
  9. OMEPRAZOLE [Concomitant]
     Indication: PROPHYLAXIS
  10. OMEPRAZOLE [Concomitant]
     Indication: CROHN'S DISEASE
  11. PARACETAMOL [Concomitant]
     Indication: PAIN
     Route: 048

REACTIONS (12)
  - ABDOMINAL PAIN [None]
  - ARTHRALGIA [None]
  - BACK PAIN [None]
  - CONSTIPATION [None]
  - FISTULA [None]
  - HAEMATOCHEZIA [None]
  - INFLUENZA [None]
  - MUSCLE SPASMS [None]
  - PAIN [None]
  - PAIN IN EXTREMITY [None]
  - RETCHING [None]
  - SKIN LESION [None]
